FAERS Safety Report 6097279-X (Version None)
Quarter: 2009Q1

REPORT INFORMATION
  Report Type: 
  Country: None (occurrence: None)
  Receive Date: 20090227
  Receipt Date: 20080919
  Transmission Date: 20090719
  Serious: No
  Sender: FDA-Public Use
  Company Number: A0748399A

PATIENT
  Age: 22 Year
  Sex: Female

DRUGS (4)
  1. TABLOID [Suspect]
     Dosage: 20MG PER DAY
     Route: 048
     Dates: start: 20080101
  2. PREDNISONE [Concomitant]
  3. ASACOL [Concomitant]
  4. YAZ [Concomitant]

REACTIONS (1)
  - ALOPECIA [None]
